FAERS Safety Report 11163218 (Version 1)
Quarter: 2015Q2

REPORT INFORMATION
  Report Type: Spontaneous
  Country: IN (occurrence: IN)
  Receive Date: 20150604
  Receipt Date: 20150604
  Transmission Date: 20150821
  Serious: Yes (Death)
  Sender: FDA-Public Use
  Company Number: IN-ASTRAZENECA-2015SE54122

PATIENT
  Age: 34 Year
  Sex: Male

DRUGS (5)
  1. STEROIDS [Concomitant]
     Active Substance: UNSPECIFIED INGREDIENT
     Indication: OEDEMA
  2. MEROPENEM. [Suspect]
     Active Substance: MEROPENEM
     Indication: BURKHOLDERIA PSEUDOMALLEI INFECTION
     Route: 042
  3. CEFTAZIDIME. [Suspect]
     Active Substance: CEFTAZIDIME
     Indication: BURKHOLDERIA PSEUDOMALLEI INFECTION
     Route: 065
  4. DOXYCYCLINE. [Concomitant]
     Active Substance: DOXYCYCLINE
     Indication: BURKHOLDERIA PSEUDOMALLEI INFECTION
  5. COTRIMOXAZOLE [Concomitant]
     Active Substance: SULFAMETHOXAZOLE\TRIMETHOPRIM
     Indication: BURKHOLDERIA PSEUDOMALLEI INFECTION

REACTIONS (1)
  - Drug resistance [Fatal]
